FAERS Safety Report 6823571-4 (Version None)
Quarter: 2010Q3

REPORT INFORMATION
  Report Type: 
  Country: None (occurrence: None)
  Receive Date: 20100708
  Receipt Date: 20060810
  Transmission Date: 20110219
  Serious: No
  Sender: FDA-Public Use
  Company Number: US-PFIZER INC-2006098011

PATIENT
  Sex: Female
  Weight: 113.4 kg

DRUGS (7)
  1. CHANTIX [Suspect]
     Indication: SMOKING CESSATION THERAPY
     Route: 065
     Dates: start: 20050802
  2. ZOLOFT [Concomitant]
     Route: 065
  3. CARDIZEM [Concomitant]
     Route: 065
  4. DIOVAN [Concomitant]
     Route: 065
  5. AMBIEN [Concomitant]
     Indication: INSOMNIA
     Route: 065
  6. ATIVAN [Concomitant]
     Route: 065
  7. LASIX [Concomitant]
     Route: 065

REACTIONS (1)
  - DRUG INEFFECTIVE [None]
